FAERS Safety Report 23114468 (Version 16)
Quarter: 2025Q2

REPORT INFORMATION
  Report Type: Spontaneous
  Country: CA (occurrence: CA)
  Receive Date: 20231027
  Receipt Date: 20250527
  Transmission Date: 20250716
  Serious: Yes (Other)
  Sender: PFIZER
  Company Number: CA-PFIZER INC-202300260205

PATIENT
  Age: 32 Year
  Sex: Female

DRUGS (4)
  1. SOMAVERT [Suspect]
     Active Substance: PEGVISOMANT
     Indication: Acromegaly
     Dosage: 10 MG, 1X/DAY
     Route: 058
     Dates: start: 20230926, end: 2023
  2. SOMAVERT [Suspect]
     Active Substance: PEGVISOMANT
     Route: 058
     Dates: start: 2023, end: 2024
  3. SOMAVERT [Suspect]
     Active Substance: PEGVISOMANT
     Route: 058
     Dates: start: 2024
  4. IRON [Concomitant]
     Active Substance: IRON

REACTIONS (16)
  - Hypothalamo-pituitary disorder [Unknown]
  - Infected cyst [Recovering/Resolving]
  - Injection site bruising [Not Recovered/Not Resolved]
  - Injection site mass [Not Recovered/Not Resolved]
  - Fat tissue increased [Not Recovered/Not Resolved]
  - Injection site pain [Unknown]
  - Injection site rash [Not Recovered/Not Resolved]
  - Crying [Unknown]
  - Depressed mood [Unknown]
  - Alopecia [Unknown]
  - Off label use [Unknown]
  - Off label use [Unknown]
  - Liquid product physical issue [Unknown]
  - Product deposit [Unknown]
  - Poor quality product administered [Unknown]
  - Product dose omission issue [Unknown]

NARRATIVE: CASE EVENT DATE: 20230101
